FAERS Safety Report 10230608 (Version 1)
Quarter: 2014Q2

REPORT INFORMATION
  Report Type: Spontaneous
  Country: BR (occurrence: BR)
  Receive Date: 20140611
  Receipt Date: 20140611
  Transmission Date: 20141212
  Serious: Yes (Other)
  Sender: FDA-Public Use
  Company Number: BR-ABBVIE-14P-020-1245101-00

PATIENT
  Age: 32 Year
  Sex: Female

DRUGS (5)
  1. KALETRA 200/50 [Suspect]
     Indication: HIV INFECTION
     Dosage: 400MG/100MG DAILY (DOSAGE DECREASED)
  2. ORMIGREIN [Suspect]
     Indication: MIGRAINE
  3. ORMIGREIN [Suspect]
  4. ZIDOVUDINE W/LAMIVUDINE [Concomitant]
     Indication: HIV INFECTION
     Dosage: 300MG/150MG DAILY
  5. TRIMETHOPRIM SULFAMETHOXAZOLE [Concomitant]
     Indication: PROPHYLAXIS
     Dosage: 800MG/160MG DAILY

REACTIONS (9)
  - Extremity necrosis [Unknown]
  - Peripheral ischaemia [Unknown]
  - Arthralgia [Unknown]
  - Cyanosis [Unknown]
  - Headache [Unknown]
  - Peripheral coldness [Unknown]
  - Cold sweat [Unknown]
  - Pulse absent [Unknown]
  - Foot amputation [None]
